FAERS Safety Report 4437936-1 (Version None)
Quarter: 2004Q3

REPORT INFORMATION
  Report Type: 
  Country: None (occurrence: None)
  Receive Date: 20040831
  Receipt Date: 20040824
  Transmission Date: 20050211
  Serious: Yes (Other)
  Sender: FDA-Public Use
  Company Number: 03384

PATIENT
  Age: 31 Year
  Sex: Female

DRUGS (4)
  1. EPIVIR [Suspect]
     Indication: HIV INFECTION
     Dosage: 150MG TWICE PER DAY
     Route: 048
  2. ZERIT [Concomitant]
     Indication: HIV INFECTION
     Dosage: 30MG TWICE PER DAY
     Route: 048
  3. KALETRA [Concomitant]
     Indication: HIV INFECTION
     Dosage: 3CAP TWICE PER DAY
     Route: 048
  4. VIREAD [Concomitant]
     Indication: HIV INFECTION
     Dosage: 300MG PER DAY
     Route: 048

REACTIONS (1)
  - ABORTION SPONTANEOUS [None]
